FAERS Safety Report 6654771-4 (Version None)
Quarter: 2010Q1

REPORT INFORMATION
  Report Type: 
  Country: None (occurrence: None)
  Receive Date: 20100328
  Receipt Date: 20100317
  Transmission Date: 20100710
  Serious: Yes (Life-Threatening, Hospitalization, Other)
  Sender: FDA-Public Use
  Company Number: FR-BRISTOL-MYERS SQUIBB COMPANY-15023203

PATIENT
  Age: 84 Year
  Sex: Female

DRUGS (9)
  1. NIFLURIL [Suspect]
     Indication: OTITIS MEDIA ACUTE
     Dosage: CAP
     Dates: start: 20100208, end: 20100209
  2. METFORMIN HCL [Suspect]
  3. AUGMENTIN '125' [Suspect]
     Indication: OTITIS MEDIA ACUTE
     Dosage: 1DF = AUGMENTIN 500MG/62.5MG TABLET
     Dates: start: 20100208
  4. OTIPAX [Suspect]
     Indication: OTITIS MEDIA ACUTE
  5. ALLOPURINOL [Suspect]
  6. TAHOR [Suspect]
  7. TRANDOLAPRIL [Suspect]
     Dosage: TRANDOLAPRIL BIOGARAN
  8. PULMICORT [Concomitant]
     Dosage: 4 DF = 4 PUFFS
     Route: 055
  9. SALBUTAMOL [Concomitant]
     Dosage: 1 DF = 6 UNIT NOS

REACTIONS (6)
  - CYTOLYTIC HEPATITIS [None]
  - DRUG LEVEL INCREASED [None]
  - HYPERKALAEMIA [None]
  - LACTIC ACIDOSIS [None]
  - RENAL FAILURE ACUTE [None]
  - RESPIRATORY DISTRESS [None]
